FAERS Safety Report 6633996-8 (Version None)
Quarter: 2010Q1

REPORT INFORMATION
  Report Type: 
  Country: None (occurrence: None)
  Receive Date: 20100315
  Receipt Date: 20100302
  Transmission Date: 20100710
  Serious: Yes (Other)
  Sender: FDA-Public Use
  Company Number: PHHY2010JP10764

PATIENT
  Age: 76 Year
  Sex: Male

DRUGS (2)
  1. ZOMETA [Suspect]
     Indication: LUNG NEOPLASM MALIGNANT
     Route: 042
  2. CHEMOTHERAPEUTICS NOS [Concomitant]

REACTIONS (3)
  - INTERSTITIAL LUNG DISEASE [None]
  - MECHANICAL VENTILATION [None]
  - RESPIRATORY FAILURE [None]
